FAERS Safety Report 20722635 (Version 1)
Quarter: 2022Q2

REPORT INFORMATION
  Report Type: Spontaneous
  Country: CN (occurrence: CN)
  Receive Date: 20220419
  Receipt Date: 20220419
  Transmission Date: 20220721
  Serious: Yes (Other)
  Sender: FDA-Public Use
  Company Number: CN-GRUNENTHAL-2022-102932

PATIENT
  Age: 59 Year
  Sex: Female
  Weight: 46 kg

DRUGS (1)
  1. TRAMADOL [Suspect]
     Active Substance: TRAMADOL
     Indication: Analgesic therapy
     Dosage: 100 MILLIGRAM, 1/DAY
     Route: 048
     Dates: start: 20220404

REACTIONS (4)
  - Hypoaesthesia [Recovering/Resolving]
  - Pallor [Recovering/Resolving]
  - Nausea [Recovering/Resolving]
  - Vomiting [Recovering/Resolving]

NARRATIVE: CASE EVENT DATE: 20220404
